FAERS Safety Report 18014442 (Version 1)
Quarter: 2020Q3

REPORT INFORMATION
  Report Type: Spontaneous
  Country: US (occurrence: US)
  Receive Date: 20200713
  Receipt Date: 20200713
  Transmission Date: 20201103
  Serious: No
  Sender: FDA-Public Use
  Company Number: None

PATIENT
  Sex: Female

DRUGS (2)
  1. SOMATULINE [Suspect]
     Active Substance: LANREOTIDE ACETATE
     Indication: CARCINOID SYNDROME
     Dosage: ?          OTHER FREQUENCY:QM;?
     Route: 058
     Dates: start: 20190129
  2. NOT REPORTED [Concomitant]

REACTIONS (2)
  - Therapy cessation [None]
  - Hypertonic bladder [None]
